FAERS Safety Report 25981072 (Version 1)
Quarter: 2025Q4

REPORT INFORMATION
  Report Type: Spontaneous
  Country: US (occurrence: US)
  Receive Date: 20251030
  Receipt Date: 20251030
  Transmission Date: 20260117
  Serious: No
  Sender: DR REDDYS
  Company Number: US-drreddys-SPO/USA/23/0167685

PATIENT
  Sex: Female

DRUGS (2)
  1. FEXOFENADINE HYDROCHLORIDE [Suspect]
     Active Substance: FEXOFENADINE HYDROCHLORIDE
     Indication: Hypersensitivity
     Dosage: NDC NUMBER: 00363078429
     Dates: start: 2016
  2. FEXOFENADINE HYDROCHLORIDE [Suspect]
     Active Substance: FEXOFENADINE HYDROCHLORIDE
     Dosage: NDC NUMBER: 0363-0784-18

REACTIONS (2)
  - Hypersensitivity [Unknown]
  - Diarrhoea [Unknown]
